FAERS Safety Report 7322899-1 (Version None)
Quarter: 2011Q1

REPORT INFORMATION
  Report Type: 
  Country: None (occurrence: None)
  Receive Date: 20110215
  Receipt Date: 20110203
  Transmission Date: 20110831
  Serious: Yes (Other)
  Sender: FDA-Public Use
  Company Number: 2011SP005538

PATIENT
  Age: 45 Year
  Sex: Male

DRUGS (2)
  1. DULCOLAX [Suspect]
     Indication: BOWEL PREPARATION
     Dosage: 5 MG; ONCE; PO
     Route: 048
     Dates: start: 20110131
  2. MIRALAX [Suspect]
     Indication: BOWEL PREPARATION
     Dosage: 238 GM; ONCE; PO, ; QD; PO
     Route: 048
     Dates: start: 20110131

REACTIONS (7)
  - SWOLLEN TONGUE [None]
  - FATIGUE [None]
  - FEELING ABNORMAL [None]
  - PRURITUS [None]
  - ERYTHEMA [None]
  - TONGUE BLISTERING [None]
  - RASH [None]
